FAERS Safety Report 19053184 (Version 2)
Quarter: 2021Q1

REPORT INFORMATION
  Report Type: Spontaneous
  Country: US (occurrence: US)
  Receive Date: 20210324
  Receipt Date: 20210330
  Transmission Date: 20210420
  Serious: No
  Sender: FDA-Public Use
  Company Number: NVSC2021US063356

PATIENT

DRUGS (1)
  1. VIVELLE?DOT [Suspect]
     Active Substance: ESTRADIOL
     Indication: PRODUCT USED FOR UNKNOWN INDICATION
     Dosage: 0.25 DF
     Route: 065

REACTIONS (4)
  - Metrorrhagia [Unknown]
  - Menopausal symptoms [Unknown]
  - Expired product administered [Unknown]
  - Wrong technique in product usage process [Unknown]
